FAERS Safety Report 16137074 (Version 3)
Quarter: 2019Q2

REPORT INFORMATION
  Report Type: Spontaneous
  Country: DE (occurrence: DE)
  Receive Date: 20190329
  Receipt Date: 20190424
  Transmission Date: 20190711
  Serious: Yes (Other)
  Sender: FDA-Public Use
  Company Number: DE-MYLANLABS-2019M1028331

PATIENT
  Age: 80 Year
  Sex: Female

DRUGS (11)
  1. SECUKINUMAB. [Concomitant]
     Active Substance: SECUKINUMAB
     Indication: PRODUCT USED FOR UNKNOWN INDICATION
     Dosage: 75 MILLIGRAM, MONTHLY
     Route: 058
     Dates: start: 20121204, end: 20150128
  2. PREDNISOLONE. [Concomitant]
     Active Substance: PREDNISOLONE
     Dosage: 2.5 MILLIGRAM, BID (2.5 MILLIGRAM, 2X/DAY)
  3. METHOTREXATE. [Suspect]
     Active Substance: METHOTREXATE
     Indication: RHEUMATOID ARTHRITIS
     Dosage: 15 MILLIGRAM
     Route: 058
     Dates: start: 20121204, end: 20150128
  4. METHOTREXATE. [Suspect]
     Active Substance: METHOTREXATE
     Dosage: 30 MILLIGRAM, QW (15 MG, 2X/WEEK)
     Route: 058
     Dates: start: 201504, end: 20150617
  5. ALENDRONATE [Suspect]
     Active Substance: ALENDRONATE SODIUM
     Indication: PRODUCT USED FOR UNKNOWN INDICATION
     Dosage: UNK
     Route: 048
  6. ROACTEMRA [Suspect]
     Active Substance: TOCILIZUMAB
     Indication: RHEUMATOID ARTHRITIS
     Dosage: 162 MILLIGRAM
     Route: 058
  7. METHOTREXATE. [Suspect]
     Active Substance: METHOTREXATE
     Dosage: 15 MILLIGRAM, QW
     Route: 058
     Dates: start: 20150313, end: 20150428
  8. ENBREL [Suspect]
     Active Substance: ETANERCEPT
     Indication: PRODUCT USED FOR UNKNOWN INDICATION
     Dosage: UNK
  9. METHOTREXATE. [Suspect]
     Active Substance: METHOTREXATE
     Dosage: 15 MILLIGRAM, QW
     Route: 058
     Dates: start: 201507, end: 20160108
  10. ARCOXIA [Suspect]
     Active Substance: ETORICOXIB
     Indication: PRODUCT USED FOR UNKNOWN INDICATION
     Dosage: UNK
     Route: 048
  11. ORENCIA [Concomitant]
     Active Substance: ABATACEPT
     Dosage: 125 MILLIGRAM, QW

REACTIONS (11)
  - Osteoarthritis [Unknown]
  - Spinal fracture [Unknown]
  - Rheumatoid nodule [Unknown]
  - Purulent discharge [Unknown]
  - Drug ineffective [Unknown]
  - Respiratory tract infection [Unknown]
  - Spinal X-ray abnormal [Unknown]
  - Spondylolisthesis [Unknown]
  - Drug intolerance [Unknown]
  - Osteoporosis [Unknown]
  - Spinal pain [Unknown]

NARRATIVE: CASE EVENT DATE: 20170322
